FAERS Safety Report 16644182 (Version 2)
Quarter: 2019Q4

REPORT INFORMATION
  Report Type: Other
  Country: US (occurrence: US)
  Receive Date: 20190729
  Receipt Date: 20191118
  Transmission Date: 20200122
  Serious: Yes (Other)
  Sender: FDA-Public Use
  Company Number: US-BIOVITRUM-2019US0830

PATIENT
  Sex: Male

DRUGS (1)
  1. KINERET [Suspect]
     Active Substance: ANAKINRA
     Indication: PRODUCT USED FOR UNKNOWN INDICATION
     Dosage: TAKES INJECTION IN THE MORNING
     Route: 058

REACTIONS (4)
  - Renal impairment [Not Recovered/Not Resolved]
  - Renal failure [Unknown]
  - Pruritus [Unknown]
  - Adverse drug reaction [Unknown]
